FAERS Safety Report 17865711 (Version 6)
Quarter: 2020Q3

REPORT INFORMATION
  Report Type: Spontaneous
  Country: US (occurrence: US)
  Receive Date: 20200605
  Receipt Date: 20200909
  Transmission Date: 20201103
  Serious: No
  Sender: FDA-Public Use
  Company Number: US-GLAXOSMITHKLINE-US2020AMR093881

PATIENT
  Sex: Female

DRUGS (3)
  1. ZEJULA [Suspect]
     Active Substance: NIRAPARIB
     Dosage: 100 MG
  2. ZEJULA [Suspect]
     Active Substance: NIRAPARIB
     Indication: THALASSAEMIA
     Dosage: 200 MG, QD
     Route: 065
     Dates: start: 20200526, end: 20200609
  3. ZEJULA [Suspect]
     Active Substance: NIRAPARIB
     Indication: OVARIAN CANCER
     Dosage: 100 MG
     Route: 065

REACTIONS (9)
  - Neutrophil count decreased [Not Recovered/Not Resolved]
  - Nausea [Unknown]
  - Dyspnoea [Unknown]
  - Constipation [Unknown]
  - Fatigue [Not Recovered/Not Resolved]
  - Blood pressure increased [Recovered/Resolved]
  - Full blood count decreased [Unknown]
  - White blood cell count decreased [Not Recovered/Not Resolved]
  - Adverse drug reaction [Unknown]
